FAERS Safety Report 20784778 (Version 2)
Quarter: 2022Q2

REPORT INFORMATION
  Report Type: Spontaneous
  Country: US (occurrence: US)
  Receive Date: 20220504
  Receipt Date: 20220524
  Transmission Date: 20220721
  Serious: No
  Sender: FDA-Public Use
  Company Number: US-PFIZER INC-202101524555

PATIENT
  Age: 76 Year
  Sex: Male
  Weight: 90.72 kg

DRUGS (3)
  1. LATANOPROST [Suspect]
     Active Substance: LATANOPROST
     Dosage: UNK
  2. LATANOPROST [Suspect]
     Active Substance: LATANOPROST
     Dosage: UNK
  3. LATANOPROST [Suspect]
     Active Substance: LATANOPROST
     Dosage: UNK, 1X/DAY (ONCE A DAY, ONE DROP IN EACH EYE)

REACTIONS (3)
  - Wrong technique in product usage process [Unknown]
  - Product container issue [Unknown]
  - Product dose omission issue [Unknown]
